FAERS Safety Report 5809080-X (Version None)
Quarter: 2008Q3

REPORT INFORMATION
  Report Type: 
  Country: None (occurrence: None)
  Receive Date: 20080711
  Receipt Date: 20080711
  Transmission Date: 20090109
  Serious: Yes (Hospitalization, Other)
  Sender: FDA-Public Use
  Company Number: None

PATIENT
  Sex: Male
  Weight: 61 kg

DRUGS (17)
  1. BEVACIZUMAB [Suspect]
     Indication: NON-SMALL CELL LUNG CANCER
     Dosage: 15 MG/KG -975 MG- EVERY 21 DAYS IV
     Route: 042
     Dates: start: 20080201, end: 20080222
  2. BORTEZOMIB [Suspect]
     Indication: NON-SMALL CELL LUNG CANCER
     Dosage: 1.6 MG/M2 -2.8 MG- DAY 1 + 8/21 DAYS IV BOLUS
     Route: 040
     Dates: start: 20080201, end: 20080229
  3. NEXIUM [Concomitant]
  4. SPIRIVA [Concomitant]
  5. ADVAIR DISKUS 100/50 [Concomitant]
  6. ENALAPRIL MALEATE [Concomitant]
  7. XALATAN [Concomitant]
  8. HYDROCHLOROTHIAZIDE [Concomitant]
  9. COMPAZINE [Concomitant]
  10. DIFLUCAN [Concomitant]
  11. ATENELOL [Concomitant]
  12. ACETAMINOPHEN [Concomitant]
  13. LEVOFLOXACIN [Concomitant]
  14. LORAZEPAM [Concomitant]
  15. METRONIDAZOLE HCL [Concomitant]
  16. MICACLE MOUTHWASH [Concomitant]
  17. IMODIUM [Concomitant]

REACTIONS (3)
  - ILIAC ARTERY OCCLUSION [None]
  - THROMBOSIS [None]
  - VASCULAR GRAFT [None]
